FAERS Safety Report 21215154 (Version 1)
Quarter: 2022Q3

REPORT INFORMATION
  Report Type: Spontaneous
  Country: GB (occurrence: GB)
  Receive Date: 20220816
  Receipt Date: 20220816
  Transmission Date: 20221027
  Serious: Yes (Hospitalization, Other)
  Sender: FDA-Public Use
  Company Number: GB-MHRA-MED-202208010739159020-KRQZG

PATIENT
  Age: 59 Year
  Sex: Female
  Weight: 105 kg

DRUGS (2)
  1. OXALIPLATIN [Suspect]
     Active Substance: OXALIPLATIN
     Indication: Adverse drug reaction
     Dosage: UNK
     Route: 065
     Dates: start: 20220728
  2. CAPECITABINE [Concomitant]
     Active Substance: CAPECITABINE
     Indication: Adverse drug reaction
     Dosage: UNK
     Route: 065
     Dates: start: 20220707

REACTIONS (2)
  - Medication error [Unknown]
  - Throat tightness [Recovered/Resolved]

NARRATIVE: CASE EVENT DATE: 20220728
